FAERS Safety Report 7278295-9 (Version None)
Quarter: 2011Q1

REPORT INFORMATION
  Report Type: 
  Country: None (occurrence: None)
  Receive Date: 20110131
  Receipt Date: 20110120
  Transmission Date: 20110831
  Serious: Yes (Life-Threatening, Hospitalization)
  Sender: FDA-Public Use
  Company Number: OMPQ-NO-1012S-1087

PATIENT
  Age: 71 Year
  Sex: Male
  Weight: 59 kg

DRUGS (2)
  1. OMNIPAQUE 70 [Suspect]
     Indication: METASTASES TO LYMPH NODES
     Dosage: 100 ML, SINGLE DOSE, I.V.
     Route: 042
     Dates: start: 20101224, end: 20101224
  2. SEISHOKU [Concomitant]

REACTIONS (7)
  - BLOOD PRESSURE SYSTOLIC INCREASED [None]
  - CONTRAST MEDIA REACTION [None]
  - LOSS OF CONSCIOUSNESS [None]
  - HEADACHE [None]
  - SHOCK [None]
  - DYSPNOEA [None]
  - DEFAECATION URGENCY [None]
